FAERS Safety Report 6758147-0 (Version None)
Quarter: 2010Q2

REPORT INFORMATION
  Report Type: 
  Country: None (occurrence: None)
  Receive Date: 20100603
  Receipt Date: 20100524
  Transmission Date: 20101027
  Serious: Yes (Other)
  Sender: FDA-Public Use
  Company Number: 1000014187

PATIENT
  Age: 24 Year
  Sex: Female

DRUGS (1)
  1. CITALOPRAM HYDROBROMIDE [Suspect]
     Indication: DEPRESSION
     Dosage: 20 MG (20 MG, 1 IN 1 D), ORAL
     Route: 048
     Dates: start: 20100501, end: 20100510

REACTIONS (4)
  - DERMATITIS ACNEIFORM [None]
  - FACE OEDEMA [None]
  - PERIORBITAL OEDEMA [None]
  - RASH PUSTULAR [None]
